FAERS Safety Report 8356892-7 (Version None)
Quarter: 2012Q2

REPORT INFORMATION
  Report Type: 
  Country: None (occurrence: None)
  Receive Date: 20120510
  Receipt Date: 20120504
  Transmission Date: 20120825
  Serious: Yes (Life-Threatening, Other)
  Sender: FDA-Public Use
  Company Number: 2012SP024079

PATIENT
  Age: 1 Day
  Sex: Female

DRUGS (7)
  1. DEPO-PROVERA [Suspect]
     Indication: FOETAL EXPOSURE DURING PREGNANCY
     Dosage: TRPL
     Route: 064
  2. AMOXICILLIN [Suspect]
     Indication: FOETAL EXPOSURE DURING PREGNANCY
     Dosage: TRPL
     Route: 064
  3. PROMETHAZINE [Suspect]
     Indication: FOETAL EXPOSURE DURING PREGNANCY
     Dosage: TRPL
     Route: 064
  4. NASONEX [Suspect]
     Indication: FOETAL EXPOSURE DURING PREGNANCY
     Dosage: TRPL
     Route: 064
  5. TOPAMAX [Suspect]
     Indication: FOETAL EXPOSURE DURING PREGNANCY
     Dosage: TRPL
     Route: 064
  6. TYLENOL W/ CODEINE [Suspect]
     Indication: FOETAL EXPOSURE DURING PREGNANCY
     Dosage: TRPL
     Route: 064
  7. MULTI-VITAMINS [Suspect]
     Indication: FOETAL EXPOSURE DURING PREGNANCY
     Dosage: TRPL
     Route: 064

REACTIONS (4)
  - LIMB DEFORMITY [None]
  - CLEFT PALATE [None]
  - MATERNAL DRUGS AFFECTING FOETUS [None]
  - CLEFT LIP [None]
